FAERS Safety Report 4417960-5 (Version None)
Quarter: 2004Q3

REPORT INFORMATION
  Report Type: 
  Country: None (occurrence: None)
  Receive Date: 20040803
  Receipt Date: 20040730
  Transmission Date: 20050211
  Serious: Yes (Hospitalization)
  Sender: FDA-Public Use
  Company Number: 2004CG01509

PATIENT
  Age: 84 Year
  Sex: Male

DRUGS (2)
  1. ZESTRIL [Suspect]
     Dosage: 5 MG QD PO
     Route: 048
     Dates: end: 20030511
  2. DIGOXIN [Suspect]
     Dosage: 1 DF QD PO
     Route: 048
     Dates: end: 20030511

REACTIONS (9)
  - ATRIOVENTRICULAR BLOCK COMPLETE [None]
  - ATRIOVENTRICULAR BLOCK FIRST DEGREE [None]
  - BRADYCARDIA [None]
  - CARDIOACTIVE DRUG LEVEL INCREASED [None]
  - CONFUSIONAL STATE [None]
  - HYPERKALAEMIA [None]
  - OVERDOSE [None]
  - RENAL FAILURE ACUTE [None]
  - VOMITING [None]
